FAERS Safety Report 7075029-8 (Version None)
Quarter: 2010Q4

REPORT INFORMATION
  Report Type: 
  Country: None (occurrence: None)
  Receive Date: 20101029
  Receipt Date: 20100309
  Transmission Date: 20110411
  Serious: No
  Sender: FDA-Public Use
  Company Number: US-WYE-H12957410

PATIENT
  Sex: Male
  Weight: 72.64 kg

DRUGS (3)
  1. ADVIL PM [Suspect]
     Indication: INSOMNIA
     Dosage: 2 CAPLETS BEFORE BED
     Route: 048
     Dates: start: 20091116, end: 20091214
  2. ADVIL PM [Suspect]
     Dosage: UNKNOWN DOSE
     Route: 048
     Dates: start: 20090101, end: 20090101
  3. VITAMIN D [Concomitant]

REACTIONS (4)
  - AGEUSIA [None]
  - GASTRITIS [None]
  - GASTROINTESTINAL MOTILITY DISORDER [None]
  - IMPAIRED GASTRIC EMPTYING [None]
